FAERS Safety Report 15847401 (Version 3)
Quarter: 2019Q2

REPORT INFORMATION
  Report Type: Spontaneous
  Country: US (occurrence: US)
  Receive Date: 20190121
  Receipt Date: 20190508
  Transmission Date: 20190711
  Serious: No
  Sender: FDA-Public Use
  Company Number: US-BIOGEN-2019BI00685009

PATIENT
  Age: 34 Year
  Sex: Male

DRUGS (6)
  1. TYLENOL [Concomitant]
     Active Substance: ACETAMINOPHEN
     Route: 065
  2. FLONASE SENSIMIST ALLERGY RELIEF [Concomitant]
     Active Substance: FLUTICASONE FUROATE
     Route: 065
  3. ALFUZOSIN HYDROCHLORIDE. [Concomitant]
     Active Substance: ALFUZOSIN HYDROCHLORIDE
     Route: 065
  4. TECFIDERA [Suspect]
     Active Substance: DIMETHYL FUMARATE
     Indication: MULTIPLE SCLEROSIS
     Dosage: TAKE 1 CAPSULE BY MOUTH TWICE A DAY
     Route: 050
     Dates: start: 20181213
  5. MINOCYCLINE HYDROCHLORIDE. [Concomitant]
     Active Substance: MINOCYCLINE HYDROCHLORIDE
     Route: 065
  6. MOTRIN IB [Concomitant]
     Active Substance: IBUPROFEN
     Route: 065

REACTIONS (4)
  - Memory impairment [Unknown]
  - Pruritus [Recovered/Resolved with Sequelae]
  - Multiple sclerosis [Unknown]
  - Hypersomnia [Unknown]

NARRATIVE: CASE EVENT DATE: 20190116
